FAERS Safety Report 14616215 (Version 1)
Quarter: 2020Q3

REPORT INFORMATION
  Report Type: Report from Study
  Country: US (occurrence: US)
  Receive Date: 20180309
  Receipt Date: 20180309
  Transmission Date: 20201104
  Serious: Yes (Hospitalization)
  Sender: FDA-Public Use
  Company Number: US-ROCHE-2080678

PATIENT
  Age: 63 Year
  Sex: Male
  Weight: 73.7 kg

DRUGS (13)
  1. TESSALON [Concomitant]
     Active Substance: BENZONATATE
     Route: 065
     Dates: start: 20170921
  2. REMERON [Concomitant]
     Active Substance: MIRTAZAPINE
     Route: 065
     Dates: start: 20171115
  3. DURAGESIC [Concomitant]
     Active Substance: FENTANYL
     Dosage: 50 MCG/HOUR
     Route: 065
     Dates: start: 20180131
  4. ALECTINIB. [Suspect]
     Active Substance: ALECTINIB
     Indication: ADENOCARCINOMA
     Dosage: TAKING 600 MG TWICE DAILY FROM DAY 1 ? 7 AND 900 MG TWICE DAILY FROM DAY 8 ? 28
     Route: 048
     Dates: start: 20180126, end: 20180201
  5. ZOFRAN [Concomitant]
     Active Substance: ONDANSETRON HYDROCHLORIDE
     Route: 065
     Dates: start: 20171002
  6. REGLAN [Concomitant]
     Active Substance: METOCLOPRAMIDE HYDROCHLORIDE
     Route: 065
     Dates: start: 20171009
  7. MARINOL [Concomitant]
     Active Substance: DRONABINOL
     Route: 065
     Dates: start: 20171101
  8. PRILOSEC [Concomitant]
     Active Substance: OMEPRAZOLE MAGNESIUM
     Route: 065
     Dates: start: 20180110
  9. RITALIN [Concomitant]
     Active Substance: METHYLPHENIDATE HYDROCHLORIDE
     Route: 065
     Dates: start: 20180209
  10. ATIVAN [Concomitant]
     Active Substance: LORAZEPAM
     Route: 065
     Dates: start: 20170921
  11. COMPAZINE [Concomitant]
     Active Substance: PROCHLORPERAZINE MALEATE
     Route: 065
     Dates: start: 20171002
  12. OXYCODONE [Concomitant]
     Active Substance: OXYCODONE
     Route: 065
     Dates: start: 20180131
  13. POTASSIUM CHLORIDE. [Concomitant]
     Active Substance: POTASSIUM CHLORIDE
     Dosage: EXTENDED RELEASE CAPSULE
     Route: 065
     Dates: start: 20180209

REACTIONS (11)
  - Fatigue [Unknown]
  - Posture abnormal [Unknown]
  - Back pain [Unknown]
  - Diarrhoea [Unknown]
  - Malaise [Unknown]
  - Pain in extremity [Unknown]
  - Abdominal distension [Unknown]
  - Pyrexia [Unknown]
  - Mobility decreased [Unknown]
  - Nausea [Unknown]
  - Abdominal pain lower [Unknown]

NARRATIVE: CASE EVENT DATE: 20180223
